FAERS Safety Report 19394515 (Version 1)
Quarter: 2021Q2

REPORT INFORMATION
  Report Type: Spontaneous
  Country: US (occurrence: US)
  Receive Date: 20210609
  Receipt Date: 20210609
  Transmission Date: 20210717
  Serious: Yes (Hospitalization, Other)
  Sender: FDA-Public Use
  Company Number: US-SUN PHARMACEUTICAL INDUSTRIES LTD-2021R1-299178

PATIENT
  Age: 5 Month
  Sex: Male

DRUGS (1)
  1. FLECAINIDE [Suspect]
     Active Substance: FLECAINIDE
     Indication: PRODUCT USED FOR UNKNOWN INDICATION
     Route: 048

REACTIONS (5)
  - Overdose [Unknown]
  - Hypoxia [Unknown]
  - Respiratory rate increased [Unknown]
  - Medication error [Unknown]
  - Arrhythmia [Unknown]
